FAERS Safety Report 6344354-8 (Version None)
Quarter: 2009Q3

REPORT INFORMATION
  Report Type: 
  Country: None (occurrence: None)
  Receive Date: 20090908
  Receipt Date: 20090824
  Transmission Date: 20100115
  Serious: Yes (Hospitalization)
  Sender: FDA-Public Use
  Company Number: US-ASTRAZENECA-2009SE11281

PATIENT
  Sex: Male

DRUGS (2)
  1. SYMBICORT [Suspect]
     Dosage: FOUR PUFFS
     Route: 055
     Dates: start: 20080101
  2. NEBULIZING MEDICINE [Concomitant]

REACTIONS (1)
  - PAIN [None]
